FAERS Safety Report 5312005-7 (Version None)
Quarter: 2007Q2

REPORT INFORMATION
  Report Type: 
  Country: None (occurrence: None)
  Receive Date: 20070430
  Receipt Date: 20060612
  Transmission Date: 20071010
  Serious: No
  Sender: FDA-Public Use
  Company Number: 2006UW12516

PATIENT
  Age: 72 Year
  Sex: Female
  Weight: 77.1 kg

DRUGS (5)
  1. NEXIUM [Suspect]
     Indication: DYSPEPSIA
     Route: 048
  2. NEXIUM [Suspect]
     Route: 048
  3. LISINOPRIL [Concomitant]
  4. ASACOL [Concomitant]
  5. CYMBALTA [Concomitant]

REACTIONS (2)
  - DRUG INEFFECTIVE [None]
  - ILL-DEFINED DISORDER [None]
